FAERS Safety Report 6126140-7 (Version None)
Quarter: 2009Q1

REPORT INFORMATION
  Report Type: 
  Country: None (occurrence: None)
  Receive Date: 20090320
  Receipt Date: 20090313
  Transmission Date: 20090719
  Serious: Yes (Hospitalization, Disabling)
  Sender: FDA-Public Use
  Company Number: A0765937A

PATIENT
  Age: 45 Year
  Sex: Male
  Weight: 81.8 kg

DRUGS (5)
  1. AVANDIA [Suspect]
     Dosage: 8MG PER DAY
     Route: 048
     Dates: start: 20041102, end: 20050326
  2. METFORMIN HCL [Concomitant]
  3. GLUCOTROL [Concomitant]
  4. AUGMENTIN '125' [Concomitant]
  5. IBUPROFEN [Concomitant]

REACTIONS (2)
  - CEREBROVASCULAR ACCIDENT [None]
  - MYOCARDIAL ISCHAEMIA [None]
